FAERS Safety Report 22526187 (Version 8)
Quarter: 2024Q1

REPORT INFORMATION
  Report Type: Spontaneous
  Country: US (occurrence: US)
  Receive Date: 20230606
  Receipt Date: 20240214
  Transmission Date: 20240410
  Serious: Yes (Other)
  Sender: FDA-Public Use
  Company Number: US-BRISTOL-MYERS SQUIBB COMPANY-2023-079165

PATIENT
  Age: 77 Year
  Sex: Female
  Weight: 50.35 kg

DRUGS (8)
  1. REVLIMID [Suspect]
     Active Substance: LENALIDOMIDE
     Indication: Plasma cell myeloma
     Dosage: QD 21D THEN 7D OFF
     Route: 048
  2. REVLIMID [Suspect]
     Active Substance: LENALIDOMIDE
     Route: 048
  3. REVLIMID [Suspect]
     Active Substance: LENALIDOMIDE
     Dosage: DAILY 1
     Route: 048
     Dates: start: 20231206
  4. METHIMAZOLE [Concomitant]
     Active Substance: METHIMAZOLE
     Indication: Product used for unknown indication
     Dosage: DAILY
     Route: 048
  5. POTASSIUM CHLORIDE [Concomitant]
     Active Substance: POTASSIUM CHLORIDE
     Indication: Product used for unknown indication
     Dosage: DAILY
     Route: 048
  6. IPRATROPIUM [Concomitant]
     Active Substance: IPRATROPIUM
     Indication: Product used for unknown indication
     Dosage: 0.5 -2.5 MG, ORAL INHALATION?FREQ: PRN
     Route: 048
  7. ALBUTEROL [Concomitant]
     Active Substance: ALBUTEROL
     Indication: Product used for unknown indication
     Dosage: 0.5-2.5 MG, ORAL INHALATION?FREQ: PRN
     Route: 048
  8. ACYCLOVIR [Concomitant]
     Active Substance: ACYCLOVIR
     Indication: Product used for unknown indication
     Dosage: DAILY
     Route: 048

REACTIONS (17)
  - Constipation [Unknown]
  - Pain [Recovered/Resolved]
  - Abdominal pain upper [Unknown]
  - Blood potassium decreased [Unknown]
  - Muscle spasms [Unknown]
  - Nausea [Unknown]
  - Asthenia [Unknown]
  - Peripheral swelling [Unknown]
  - Fall [Unknown]
  - Contusion [Unknown]
  - Depression [Unknown]
  - Dysgeusia [Unknown]
  - Alopecia [Unknown]
  - Illness [Unknown]
  - Weight decreased [Unknown]
  - Influenza [Unknown]
  - Bone pain [Unknown]

NARRATIVE: CASE EVENT DATE: 20231206
